FAERS Safety Report 9782559 (Version 1)
Quarter: 2013Q4

REPORT INFORMATION
  Report Type: Spontaneous
  Country: GB (occurrence: None)
  Receive Date: 20131220
  Receipt Date: 20131220
  Transmission Date: 20140711
  Serious: Yes (Other)
  Sender: FDA-Public Use
  Company Number: AUR-APL-2013-10538

PATIENT
  Age: 63 Year
  Sex: Male
  Weight: 75 kg

DRUGS (8)
  1. AMOXICILLIN (AMOXICILLIN) [Suspect]
     Indication: PRODUCT USED FOR UNKNOWN INDICATION
  2. ATORVASTATIN (ATORVASTATIN) [Concomitant]
  3. CETIRIZINE (CETIRIZINE) [Concomitant]
  4. INFLUENZA VIRUS (INFLUENZA VACCINE) [Concomitant]
  5. LOSARTAN (LOSARTAN) [Concomitant]
  6. METFORMIN (METFORMIN) [Concomitant]
  7. SILDENAFIL (SILDENAFIL) [Concomitant]
  8. SIMVASTATIN (SIMVASTATIN) [Concomitant]

REACTIONS (1)
  - Liver function test abnormal [None]
